FAERS Safety Report 12927585 (Version 1)
Quarter: 2016Q4

REPORT INFORMATION
  Report Type: Spontaneous
  Country: US (occurrence: US)
  Receive Date: 20161109
  Receipt Date: 20161109
  Transmission Date: 20170207
  Serious: Yes (Hospitalization)
  Sender: FDA-Public Use
  Company Number: US-BAUSCH-BL-2016-026527

PATIENT
  Age: 1 Year
  Sex: Male

DRUGS (1)
  1. ADDYI [Suspect]
     Active Substance: FLIBANSERIN
     Indication: PRODUCT USED FOR UNKNOWN INDICATION
     Route: 048
     Dates: start: 20161026

REACTIONS (6)
  - Accidental exposure to product by child [Unknown]
  - Aspiration [Unknown]
  - Pyrexia [Unknown]
  - Obstructive airways disorder [Unknown]
  - Depressed level of consciousness [Unknown]
  - Accidental overdose [Unknown]

NARRATIVE: CASE EVENT DATE: 201610
